FAERS Safety Report 4569021-2 (Version None)
Quarter: 2005Q1

REPORT INFORMATION
  Report Type: 
  Country: None (occurrence: None)
  Receive Date: 20050203
  Receipt Date: 20050131
  Transmission Date: 20050727
  Serious: Yes (Death)
  Sender: FDA-Public Use
  Company Number: 200510365FR

PATIENT
  Age: 73 Year
  Sex: Female

DRUGS (5)
  1. LOVENOX [Suspect]
     Route: 058
     Dates: end: 20040721
  2. ACETAMINOPHEN [Concomitant]
  3. SKENAN [Concomitant]
  4. MEGACE [Concomitant]
  5. ZOMETA [Concomitant]

REACTIONS (12)
  - ATRIAL FIBRILLATION [None]
  - BACK PAIN [None]
  - CEREBRAL ISCHAEMIA [None]
  - CEREBROVASCULAR ACCIDENT [None]
  - COMA [None]
  - ECHOLALIA [None]
  - EPIDURITIS [None]
  - METASTASES TO SPINE [None]
  - NERVOUS SYSTEM DISORDER [None]
  - REPETITIVE SPEECH [None]
  - SPEECH DISORDER [None]
  - THROMBOCYTOPENIA [None]
